FAERS Safety Report 16714806 (Version 2)
Quarter: 2019Q3

REPORT INFORMATION
  Report Type: Spontaneous
  Country: AU (occurrence: AU)
  Receive Date: 20190819
  Receipt Date: 20190820
  Transmission Date: 20191005
  Serious: Yes (Other)
  Sender: FDA-Public Use
  Company Number: AU-009507513-1908AUS005635

PATIENT
  Age: 37 Year
  Sex: Female

DRUGS (5)
  1. CAMPRAL [Concomitant]
     Active Substance: ACAMPROSATE CALCIUM
  2. RESTAVIT [Concomitant]
     Active Substance: DOXYLAMINE SUCCINATE
     Indication: INSOMNIA
  3. BELSOMRA [Suspect]
     Active Substance: SUVOREXANT
     Indication: INSOMNIA
     Dosage: UNK
     Route: 048
  4. OMEGA-3 MARINE TRIGLYCERIDES [Concomitant]
     Active Substance: FISH OIL
  5. VITAMIN B (UNSPECIFIED) [Concomitant]
     Active Substance: VITAMIN B

REACTIONS (4)
  - Neck pain [Unknown]
  - Nervousness [Unknown]
  - Nightmare [Unknown]
  - Muscle spasms [Not Recovered/Not Resolved]
